FAERS Safety Report 4713121-0 (Version None)
Quarter: 2005Q3

REPORT INFORMATION
  Report Type: 
  Country: None (occurrence: None)
  Receive Date: 20050701
  Receipt Date: 20041108
  Transmission Date: 20060218
  Serious: Yes (Other)
  Sender: FDA-Public Use
  Company Number: 2004081644

PATIENT
  Age: 38 Year
  Sex: Male

DRUGS (2)
  1. ZOLOFT [Suspect]
     Indication: ILL-DEFINED DISORDER
  2. TERBINAFINE HCL [Suspect]
     Indication: ILL-DEFINED DISORDER

REACTIONS (3)
  - AGGRESSION [None]
  - DRUG INTERACTION [None]
  - SUICIDAL IDEATION [None]
